FAERS Safety Report 9656770 (Version 1)
Quarter: 2013Q4

REPORT INFORMATION
  Report Type: Spontaneous
  Country: US (occurrence: US)
  Receive Date: 20131030
  Receipt Date: 20131030
  Transmission Date: 20140711
  Serious: Yes (Other)
  Sender: FDA-Public Use
  Company Number: US-PFIZER INC-2013305181

PATIENT
  Sex: Female

DRUGS (4)
  1. METFORMIN HCL [Suspect]
     Dosage: UNK
  2. DILTIAZEM [Suspect]
     Dosage: UNK
  3. FUROSEMIDE [Suspect]
     Dosage: UNK
  4. CORTISONE [Suspect]
     Dosage: UNK

REACTIONS (4)
  - Pharyngeal oedema [Unknown]
  - Throat tightness [Unknown]
  - Reaction to drug excipients [Unknown]
  - Oral pain [Unknown]
